FAERS Safety Report 14322744 (Version 1)
Quarter: 2017Q4

REPORT INFORMATION
  Report Type: Spontaneous
  Country: BR (occurrence: BR)
  Receive Date: 20171225
  Receipt Date: 20171225
  Transmission Date: 20180321
  Serious: Yes (Hospitalization)
  Sender: FDA-Public Use
  Company Number: BR-BAXTER-2017BAX043124

PATIENT
  Age: 33 Year
  Sex: Female
  Weight: 85 kg

DRUGS (3)
  1. MORPHINE [Concomitant]
     Active Substance: MORPHINE
     Indication: PAIN
     Route: 065
  2. MITEXAN [Suspect]
     Active Substance: MESNA
     Indication: SARCOMA
     Route: 065
     Dates: start: 20170925, end: 20170925
  3. HOLOXANE [Suspect]
     Active Substance: IFOSFAMIDE
     Indication: SARCOMA
     Route: 065
     Dates: end: 20170925

REACTIONS (4)
  - Tremor [Unknown]
  - Body temperature increased [Unknown]
  - Tachycardia [Unknown]
  - Hypotension [Unknown]

NARRATIVE: CASE EVENT DATE: 20170925
